FAERS Safety Report 5088020-8 (Version None)
Quarter: 2006Q3

REPORT INFORMATION
  Report Type: 
  Country: None (occurrence: None)
  Receive Date: 20060821
  Receipt Date: 20060810
  Transmission Date: 20061208
  Serious: Yes (Other)
  Sender: FDA-Public Use
  Company Number: 2006-06-0195

PATIENT
  Age: 50 Year
  Sex: Female
  Weight: 124.7392 kg

DRUGS (2)
  1. NASONEX [Suspect]
     Indication: RHINITIS ALLERGIC
     Dosage: 2 SQUIRTS/NAR NASAL SPRAY
     Route: 045
     Dates: start: 20060601, end: 20060601
  2. TOPROL-XL [Concomitant]

REACTIONS (2)
  - ATRIAL TACHYCARDIA [None]
  - BLOOD POTASSIUM DECREASED [None]
